FAERS Safety Report 6156531-X (Version None)
Quarter: 2009Q2

REPORT INFORMATION
  Report Type: 
  Country: None (occurrence: None)
  Receive Date: 20090413
  Receipt Date: 20090213
  Transmission Date: 20091009
  Serious: Yes (Death)
  Sender: FDA-Public Use
  Company Number: OPER20090032

PATIENT
  Age: 55 Year
  Sex: Female

DRUGS (2)
  1. OPANA ER [Suspect]
     Dosage: 10 MG, BID,
  2. XANAX [Suspect]

REACTIONS (1)
  - OVERDOSE [None]
